FAERS Safety Report 13786723 (Version 1)
Quarter: 2017Q3

REPORT INFORMATION
  Report Type: Spontaneous
  Country: US (occurrence: US)
  Receive Date: 20170725
  Receipt Date: 20170725
  Transmission Date: 20171127
  Serious: Yes (Hospitalization, Disabling, Other)
  Sender: FDA-Public Use
  Company Number: None

PATIENT
  Age: 50 Year
  Sex: Female
  Weight: 114.76 kg

DRUGS (18)
  1. AMLODIPINE [Concomitant]
     Active Substance: AMLODIPINE BESYLATE
  2. LOSARTAN. [Concomitant]
     Active Substance: LOSARTAN
  3. BAYER ASPIRIN 81 MG LOW DOSE 9SAFETY COATED) [Concomitant]
  4. METHOTREXATE 2.5MG-YELLOW [Suspect]
     Active Substance: METHOTREXATE SODIUM
     Indication: CARDIOMEGALY
     Dosage: DOSE - 4 TABS X 1WK - 2WKS / 8 TABS X 1WK
     Route: 048
     Dates: start: 20151012
  5. VITAMIN D [Concomitant]
     Active Substance: CHOLECALCIFEROL
  6. AMLODIPINE BESYLATE 5MG [Suspect]
     Active Substance: AMLODIPINE BESYLATE
     Dosage: DOSE 1X DAILY
  7. METRONIDAZOLE. [Concomitant]
     Active Substance: METRONIDAZOLE
  8. CARVEDILOL. [Concomitant]
     Active Substance: CARVEDILOL
  9. CETIRIZINE [Concomitant]
     Active Substance: CETIRIZINE HYDROCHLORIDE
  10. IPRATROPIUM [Concomitant]
     Active Substance: IPRATROPIUM
  11. METHOTREXATE. [Concomitant]
     Active Substance: METHOTREXATE
  12. CIPROFLOXACIN. [Concomitant]
     Active Substance: CIPROFLOXACIN
  13. FOLIC ACID. [Concomitant]
     Active Substance: FOLIC ACID
  14. URSODIOL. [Concomitant]
     Active Substance: URSODIOL
  15. IBUPROFEN. [Concomitant]
     Active Substance: IBUPROFEN
  16. METHOTREXATE 2.5MG-YELLOW [Suspect]
     Active Substance: METHOTREXATE SODIUM
     Indication: RHEUMATOID ARTHRITIS
     Dosage: DOSE - 4 TABS X 1WK - 2WKS / 8 TABS X 1WK
     Route: 048
     Dates: start: 20151012
  17. METHOTREXATE 2.5MG-YELLOW [Suspect]
     Active Substance: METHOTREXATE SODIUM
     Indication: HYPERTENSION
     Dosage: DOSE - 4 TABS X 1WK - 2WKS / 8 TABS X 1WK
     Route: 048
     Dates: start: 20151012
  18. FLUTICASONE NASAL SPRAY [Concomitant]
     Active Substance: FLUTICASONE

REACTIONS (11)
  - Cardiomegaly [None]
  - Dyspnoea [None]
  - Myalgia [None]
  - Arthralgia [None]
  - Headache [None]
  - Anxiety [None]
  - Mobility decreased [None]
  - Hypertension [None]
  - C-reactive protein increased [None]
  - Abdominal pain upper [None]
  - Back pain [None]

NARRATIVE: CASE EVENT DATE: 20151012
